FAERS Safety Report 4843575-0 (Version None)
Quarter: 2005Q4

REPORT INFORMATION
  Report Type: 
  Country: None (occurrence: None)
  Receive Date: 20051202
  Receipt Date: 20051122
  Transmission Date: 20060501
  Serious: Yes (Hospitalization)
  Sender: FDA-Public Use
  Company Number: DE-BOEHRINGER INGELHEIM PHARMACEUTICALS, INC.-2005-DE-05121DE

PATIENT
  Sex: Male

DRUGS (4)
  1. SIFROL [Suspect]
     Indication: RESTLESS LEGS SYNDROME
  2. ASPIRIN [Suspect]
     Indication: PROPHYLAXIS
  3. HYDROCHLOROTHIAZIDE [Concomitant]
     Indication: OEDEMA
  4. BENALAPRIL [Concomitant]
     Indication: HYPERTENSION

REACTIONS (1)
  - INTESTINAL HAEMORRHAGE [None]
